FAERS Safety Report 24206413 (Version 1)
Quarter: 2024Q3

REPORT INFORMATION
  Report Type: Spontaneous
  Country: CA (occurrence: CA)
  Receive Date: 20240813
  Receipt Date: 20240813
  Transmission Date: 20241016
  Serious: Yes (Life-Threatening, Hospitalization, Other)
  Sender: TEVA
  Company Number: CA-TEVA-VS-3231200

PATIENT
  Age: 33 Year
  Sex: Female

DRUGS (2)
  1. PROGESTERONE [Suspect]
     Active Substance: PROGESTERONE
     Indication: In vitro fertilisation
     Dosage: DESCRIPTION: PROGESTERONE INJECTION, USP, DOSE FORM: SOLUTION INTRAMUSCULAR
     Route: 030
  2. ESTRADIOL [Concomitant]
     Active Substance: ESTRADIOL
     Indication: Product used for unknown indication
     Route: 065

REACTIONS (8)
  - Cough [Recovering/Resolving]
  - Injection site rash [Recovering/Resolving]
  - Product formulation issue [Recovering/Resolving]
  - Dyspnoea [Recovering/Resolving]
  - Eosinophilic pneumonia [Recovering/Resolving]
  - Pneumonitis [Recovering/Resolving]
  - Eosinophil count increased [Recovering/Resolving]
  - Headache [Recovering/Resolving]
